FAERS Safety Report 5869864-9 (Version None)
Quarter: 2008Q3

REPORT INFORMATION
  Report Type: 
  Country: None (occurrence: None)
  Receive Date: 20080904
  Receipt Date: 20080827
  Transmission Date: 20090109
  Serious: Yes (Life-Threatening, Hospitalization)
  Sender: FDA-Public Use
  Company Number: DE-BRISTOL-MYERS SQUIBB COMPANY-13582440

PATIENT
  Age: 54 Year
  Sex: Male

DRUGS (5)
  1. CETUXIMAB [Suspect]
     Indication: HEAD AND NECK CANCER
     Route: 041
     Dates: start: 20061106, end: 20061113
  2. CISPLATIN [Suspect]
     Indication: HEAD AND NECK CANCER
     Route: 042
     Dates: start: 20061106, end: 20061120
  3. RADIATION THERAPY [Suspect]
     Indication: HEAD AND NECK CANCER
     Dosage: DOSAGE FORM = GY
     Dates: start: 20061109, end: 20061109
  4. PALLADONE [Suspect]
     Indication: PAIN
     Route: 048
     Dates: start: 20060901
  5. ACTIQ [Suspect]
     Indication: PAIN
     Route: 048
     Dates: start: 20060901

REACTIONS (4)
  - ABDOMINAL PAIN [None]
  - CONSTIPATION [None]
  - GASTRIC ULCER PERFORATION [None]
  - NAUSEA [None]
